FAERS Safety Report 7895800-X (Version None)
Quarter: 2011Q4

REPORT INFORMATION
  Report Type: 
  Country: None (occurrence: None)
  Receive Date: 20111102
  Receipt Date: 20111019
  Transmission Date: 20120403
  Serious: Yes (Disabling, Other)
  Sender: FDA-Public Use
  Company Number: 20110736

PATIENT
  Age: 21 Year
  Sex: Female
  Weight: 42 kg

DRUGS (1)
  1. ACETYLCYSTEINE [Suspect]
     Indication: OVERDOSE
     Dosage: 50-150 MG/KG

REACTIONS (13)
  - OVERDOSE [None]
  - DRUG ADMINISTRATION ERROR [None]
  - SLUGGISHNESS [None]
  - ALANINE AMINOTRANSFERASE INCREASED [None]
  - ABNORMAL BEHAVIOUR [None]
  - VOMITING [None]
  - AGITATION [None]
  - NERVOUS SYSTEM DISORDER [None]
  - BRAIN OEDEMA [None]
  - MYDRIASIS [None]
  - OFF LABEL USE [None]
  - BRAIN HERNIATION [None]
  - STATUS EPILEPTICUS [None]
